FAERS Safety Report 6294339-5 (Version None)
Quarter: 2009Q3

REPORT INFORMATION
  Report Type: 
  Country: None (occurrence: None)
  Receive Date: 20090803
  Receipt Date: 20090721
  Transmission Date: 20100115
  Serious: Yes (Other)
  Sender: FDA-Public Use
  Company Number: US-PFIZER INC-2008002523

PATIENT
  Sex: Male
  Weight: 90.909 kg

DRUGS (7)
  1. CHANTIX [Suspect]
     Dates: start: 20071125, end: 20071228
  2. CADUET [Suspect]
     Indication: MYOCARDIAL INFARCTION
     Dosage: UNK
     Dates: start: 20080801
  3. AMLODIPINE BESILATE [Suspect]
     Dosage: UNK
     Dates: start: 20090101, end: 20090101
  4. FACTIVE [Suspect]
  5. PLAVIX [Suspect]
     Dates: start: 20080101
  6. VITAMIN E [Concomitant]
  7. ASCORBIC ACID [Concomitant]

REACTIONS (19)
  - ABNORMAL BEHAVIOUR [None]
  - ANXIETY [None]
  - ARTHRALGIA [None]
  - ASTHMA [None]
  - BRONCHITIS [None]
  - COUGH [None]
  - DISTURBANCE IN ATTENTION [None]
  - DRUG INEFFECTIVE [None]
  - DYSPEPSIA [None]
  - EYE PAIN [None]
  - FATIGUE [None]
  - HEADACHE [None]
  - HYPERSOMNIA [None]
  - INSOMNIA [None]
  - MALAISE [None]
  - MORBID THOUGHTS [None]
  - MYOCARDIAL INFARCTION [None]
  - PHARYNGEAL OEDEMA [None]
  - RESTLESSNESS [None]
